FAERS Safety Report 7119755-0 (Version None)
Quarter: 2010Q4

REPORT INFORMATION
  Report Type: 
  Country: None (occurrence: None)
  Receive Date: 20101123
  Receipt Date: 20100805
  Transmission Date: 20110411
  Serious: No
  Sender: FDA-Public Use
  Company Number: US-BRISTOL-MYERS SQUIBB COMPANY-15227648

PATIENT
  Age: 70 Year
  Sex: Male

DRUGS (2)
  1. ONGLYZA [Suspect]
  2. GLYBURIDE AND METFORMIN HYDROCHLORIDE [Concomitant]

REACTIONS (3)
  - CHEST EXPANSION DECREASED [None]
  - DYSPNOEA [None]
  - FAECES HARD [None]
